FAERS Safety Report 8386624-8 (Version None)
Quarter: 2012Q2

REPORT INFORMATION
  Report Type: 
  Country: None (occurrence: None)
  Receive Date: 20120525
  Receipt Date: 20120515
  Transmission Date: 20120825
  Serious: Yes (Other)
  Sender: FDA-Public Use
  Company Number: US-ABBOTT-12P-163-0935820-00

PATIENT
  Sex: Male
  Weight: 78.088 kg

DRUGS (24)
  1. HUMIRA [Suspect]
     Dates: start: 20120429
  2. CYMBALTA [Concomitant]
     Indication: DEPRESSION
  3. CYMBALTA [Concomitant]
     Indication: PAIN
  4. HUMIRA [Suspect]
     Indication: PSORIATIC ARTHROPATHY
     Dates: start: 20070101, end: 20110101
  5. ENTOCORT EC [Concomitant]
     Indication: COLITIS
  6. RITUXAN [Concomitant]
     Indication: PSORIATIC ARTHROPATHY
     Dates: start: 20110901
  7. FOLIC ACID [Concomitant]
     Indication: PRODUCT USED FOR UNKNOWN INDICATION
  8. HYZAAR [Concomitant]
     Indication: HYPERTENSION
  9. LEFLUNOMIDE [Concomitant]
     Indication: PSORIATIC ARTHROPATHY
  10. TRAMADOL HCL [Concomitant]
     Indication: PAIN
  11. DEXILANT [Concomitant]
     Indication: GASTROINTESTINAL DISORDER
  12. VITAMIN D [Concomitant]
     Indication: VITAMIN SUPPLEMENTATION
  13. VOLTAREN [Concomitant]
     Indication: ARTHRITIS
     Dosage: GEL
  14. PREDNISONE [Concomitant]
     Indication: PSORIATIC ARTHROPATHY
     Dates: end: 20120501
  15. LIPITOR [Concomitant]
     Indication: BLOOD CHOLESTEROL INCREASED
  16. VERAPAMIL [Concomitant]
     Indication: MIGRAINE
  17. ZOFRAN [Concomitant]
     Indication: NAUSEA
  18. FISH OIL [Concomitant]
     Indication: SUPPLEMENTATION THERAPY
  19. HUMIRA [Suspect]
     Dosage: ONE DOSE
     Dates: start: 20120419, end: 20120419
  20. LEFLUNOMIDE [Concomitant]
  21. CLONIDINE [Concomitant]
     Indication: MIGRAINE
  22. CLONAZEPAM [Concomitant]
     Indication: MIGRAINE
  23. ZOFRAN [Concomitant]
     Indication: MIGRAINE
  24. TOPAMAX [Concomitant]
     Indication: MIGRAINE

REACTIONS (14)
  - AUTOIMMUNE DISORDER [None]
  - OCULAR HYPERAEMIA [None]
  - ENCEPHALITIS [None]
  - DEMYELINATION [None]
  - PSORIASIS [None]
  - CENTRAL NERVOUS SYSTEM LESION [None]
  - CEREBRAL ISCHAEMIA [None]
  - SCLERITIS [None]
  - DISTRACTIBILITY [None]
  - ROAD TRAFFIC ACCIDENT [None]
  - FEELING HOT [None]
  - ARTHRALGIA [None]
  - PAIN IN EXTREMITY [None]
  - ARTHRITIS [None]
